FAERS Safety Report 4773456-2 (Version None)
Quarter: 2005Q3

REPORT INFORMATION
  Report Type: 
  Country: None (occurrence: None)
  Receive Date: 20050920
  Receipt Date: 20050909
  Transmission Date: 20060218
  Serious: Yes (Hospitalization, Other)
  Sender: FDA-Public Use
  Company Number: US-JNJFOC-20050902757

PATIENT
  Sex: Female

DRUGS (1)
  1. DOXIL [Suspect]
     Indication: KAPOSI'S SARCOMA
     Route: 042

REACTIONS (1)
  - ACUTE RESPIRATORY DISTRESS SYNDROME [None]
